FAERS Safety Report 24000715 (Version 1)
Quarter: 2024Q2

REPORT INFORMATION
  Report Type: Spontaneous
  Country: US (occurrence: US)
  Receive Date: 20240621
  Receipt Date: 20240621
  Transmission Date: 20240716
  Serious: Yes (Other)
  Sender: FDA-Public Use
  Company Number: US-ORGANON-O2405USA001807

PATIENT
  Age: 29 Year
  Sex: Female
  Weight: 73.93 kg

DRUGS (1)
  1. NEXPLANON [Suspect]
     Active Substance: ETONOGESTREL
     Indication: Contraception
     Dosage: 68 MG, 1 IMPLANT IN LEFT UPPER ARM EVERY 3 YEARS
     Route: 059
     Dates: start: 20240411, end: 20240613

REACTIONS (6)
  - Device expulsion [Recovered/Resolved]
  - Implant site scar [Unknown]
  - Implant site irritation [Not Recovered/Not Resolved]
  - Implant site erythema [Not Recovered/Not Resolved]
  - Implant site pain [Not Recovered/Not Resolved]
  - Device placement issue [Recovered/Resolved]

NARRATIVE: CASE EVENT DATE: 20240411
